FAERS Safety Report 9752345 (Version 3)
Quarter: 2014Q1

REPORT INFORMATION
  Report Type: Spontaneous
  Country: US (occurrence: US)
  Receive Date: 20131213
  Receipt Date: 20140103
  Transmission Date: 20141002
  Serious: No
  Sender: FDA-Public Use
  Company Number: US-PFIZER INC-2013316727

PATIENT
  Age: 44 Year
  Sex: Female

DRUGS (3)
  1. SUTENT [Suspect]
     Indication: THYROID CANCER
     Dosage: UNK
  2. SUTENT [Suspect]
     Dosage: 50 MG, DAILY
  3. LEVOTHYROXINE [Concomitant]
     Dosage: UNK

REACTIONS (14)
  - Glossodynia [Unknown]
  - Oral pain [Recovered/Resolved]
  - Candida infection [Unknown]
  - Rhinorrhoea [Unknown]
  - Cough [Unknown]
  - Fatigue [Unknown]
  - Toothache [Recovered/Resolved]
  - Blood pressure increased [Unknown]
  - Muscular weakness [Unknown]
  - Off label use [Unknown]
  - Eyelash discolouration [Unknown]
  - Alopecia [Unknown]
  - Dysgeusia [Unknown]
  - Stomatitis [Unknown]
